FAERS Safety Report 9921914 (Version 2)
Quarter: 2014Q2

REPORT INFORMATION
  Report Type: Report from Study
  Country: JP (occurrence: JP)
  Receive Date: 20140225
  Receipt Date: 20140530
  Transmission Date: 20141212
  Serious: Yes (Death, Disabling)
  Sender: FDA-Public Use
  Company Number: JP-SA-2014SA022610

PATIENT
  Age: 16 Year
  Sex: Female
  Weight: 43 kg

DRUGS (7)
  1. THYMOGLOBULINE [Suspect]
     Indication: BONE MARROW CONDITIONING REGIMEN
     Route: 042
     Dates: start: 20120411, end: 20120412
  2. ALKERAN [Suspect]
     Indication: BONE MARROW CONDITIONING REGIMEN
     Route: 065
     Dates: start: 20120413, end: 20120414
  3. NAVELBINE [Suspect]
     Indication: PRODUCT USED FOR UNKNOWN INDICATION
     Route: 065
  4. FLUDARA [Concomitant]
     Indication: BONE MARROW CONDITIONING REGIMEN
     Dates: start: 20120408, end: 20120412
  5. VENOGLOBULIN-IH [Concomitant]
     Indication: ANTIVIRAL PROPHYLAXIS
     Dates: start: 20120407, end: 20120506
  6. PREDONINE [Concomitant]
     Indication: PROPHYLAXIS AGAINST GRAFT VERSUS HOST DISEASE
     Dates: start: 20120416, end: 20120429
  7. PROGRAF [Concomitant]
     Indication: PROPHYLAXIS AGAINST GRAFT VERSUS HOST DISEASE
     Dates: start: 20120417, end: 20120510

REACTIONS (3)
  - Pulmonary haemorrhage [Fatal]
  - Pneumonia [Fatal]
  - Renal failure acute [Not Recovered/Not Resolved]
